FAERS Safety Report 5453436-4 (Version None)
Quarter: 2007Q3

REPORT INFORMATION
  Report Type: 
  Country: None (occurrence: None)
  Receive Date: 20070913
  Receipt Date: 20070831
  Transmission Date: 20080115
  Serious: Yes (Death)
  Sender: FDA-Public Use
  Company Number: 2007VX002265

PATIENT
  Sex: Female

DRUGS (1)
  1. INFERGEN [Suspect]

REACTIONS (2)
  - EATING DISORDER [None]
  - VOMITING [None]
